FAERS Safety Report 21113945 (Version 1)
Quarter: 2022Q3

REPORT INFORMATION
  Report Type: Spontaneous
  Country: US (occurrence: US)
  Receive Date: 20220721
  Receipt Date: 20220721
  Transmission Date: 20221027
  Serious: No
  Sender: FDA-Public Use
  Company Number: US-MYLANLABS-2022M1078632

PATIENT
  Sex: Female

DRUGS (1)
  1. CORTIFOAM [Suspect]
     Active Substance: HYDROCORTISONE ACETATE
     Indication: Colitis ulcerative
     Dosage: 10 PERCENT, HS (INSERT 1 APPLICATION  INTO THE RECTUM EVERY  NIGHT AT BEDTIME)
     Route: 054

REACTIONS (2)
  - Product leakage [Unknown]
  - Incorrect dose administered [Unknown]
